FAERS Safety Report 8448536-0 (Version None)
Quarter: 2012Q2

REPORT INFORMATION
  Report Type: 
  Country: None (occurrence: None)
  Receive Date: 20120619
  Receipt Date: 20120604
  Transmission Date: 20120825
  Serious: Yes (Hospitalization)
  Sender: FDA-Public Use
  Company Number: JP-ROCHE-1078974

PATIENT
  Age: 49 Year
  Sex: Female

DRUGS (1)
  1. ALTEPLASE [Suspect]
     Indication: ISCHAEMIC STROKE
     Route: 042

REACTIONS (7)
  - EXTRADURAL HAEMATOMA [None]
  - PROCEDURAL HAEMORRHAGE [None]
  - SPINAL CORD COMPRESSION [None]
  - QUADRIPLEGIA [None]
  - NECK PAIN [None]
  - SPONTANEOUS HAEMATOMA [None]
  - SPINAL EPIDURAL HAEMORRHAGE [None]
